FAERS Safety Report 8622408-0 (Version None)
Quarter: 2012Q3

REPORT INFORMATION
  Report Type: 
  Country: None (occurrence: None)
  Receive Date: 20120827
  Receipt Date: 20120820
  Transmission Date: 20120928
  Serious: No
  Sender: FDA-Public Use
  Company Number: US-BIOGENIDEC-2012BI032735

PATIENT
  Age: 54 Year
  Sex: Female

DRUGS (3)
  1. TYSABRI [Suspect]
     Indication: MULTIPLE SCLEROSIS
     Route: 042
     Dates: start: 20071101
  2. TYSABRI [Suspect]
     Route: 042
     Dates: start: 20071113, end: 20100926
  3. TYSABRI [Suspect]
     Route: 042
     Dates: start: 20111204

REACTIONS (1)
  - COLITIS MICROSCOPIC [None]
